FAERS Safety Report 10585164 (Version 4)
Quarter: 2015Q2

REPORT INFORMATION
  Report Type: Spontaneous
  Country: IT (occurrence: None)
  Receive Date: 20141113
  Receipt Date: 20150413
  Transmission Date: 20150821
  Serious: Yes (Hospitalization)
  Sender: FDA-Public Use
  Company Number: 2014MPI01380

PATIENT
  Age: 49 Year
  Sex: Female
  Weight: 55 kg

DRUGS (19)
  1. FOLINA (FOLIC ACID) [Concomitant]
     Active Substance: FOLIC ACID
  2. FOLINA (FOLIC ACID) [Concomitant]
     Active Substance: FOLIC ACID
  3. POSACONAZOLE (POSACONAZOLE) [Concomitant]
  4. DICLOFENAC (DICLOFENAC POTASSIUM) [Concomitant]
  5. ADCETRIS [Suspect]
     Active Substance: BRENTUXIMAB VEDOTIN
     Indication: ANAPLASTIC LARGE-CELL LYMPHOMA
     Route: 042
     Dates: start: 20140829, end: 20140919
  6. CYCLOSPORINE (CICLOSPORIN) [Concomitant]
     Active Substance: CYCLOSPORINE
  7. OMEPRAZOLE (OMEPRAZOLE) [Concomitant]
     Active Substance: OMEPRAZOLE
  8. CIPROFLOXACIN (CIPROFLOXACIN HYDROCHLORIDE) [Concomitant]
  9. NORVASC [Concomitant]
     Active Substance: AMLODIPINE BESYLATE
  10. DICLOFENAC (DICLOFENAC POTASSIUM) [Concomitant]
  11. MABTHERA [Suspect]
     Active Substance: RITUXIMAB
     Indication: EPSTEIN-BARR VIRUS INFECTION
     Route: 042
     Dates: start: 20140904, end: 20140904
  12. VALGANCICLOVIR HYDROCHLORIDE (VALGANCICLOVIR HYDROCHLORIDE) [Concomitant]
  13. TRITTICO (TRAZODONE HYDROCHLORIDE) [Concomitant]
     Active Substance: TRAZODONE HYDROCHLORIDE
  14. STILNOX (ZOLPIDEM TARTRATE) [Concomitant]
  15. SELEPARINA (NADROPARIN CALCIUM) [Concomitant]
  16. CIPROFLOXACIN (CIPROFLOXACIN HYDROCHLORIDE) [Concomitant]
  17. CIPRALEX (ESCITALOPRAM OXALATE) [Concomitant]
  18. XANAX [Concomitant]
     Active Substance: ALPRAZOLAM
  19. CONTRAMAL (TRAMADOL HYDROCHLORIDE) [Concomitant]

REACTIONS (1)
  - Encephalitis [None]

NARRATIVE: CASE EVENT DATE: 20141002
